FAERS Safety Report 5225477-3 (Version None)
Quarter: 2007Q1

REPORT INFORMATION
  Report Type: 
  Country: None (occurrence: None)
  Receive Date: 20061201
  Receipt Date: 20060823
  Transmission Date: 20070707
  Serious: No
  Sender: FDA-Public Use
  Company Number: US200608005047

PATIENT
  Age: 65 Year

DRUGS (1)
  1. CYMBALTA [Suspect]
     Dosage: ORAL
     Route: 048

REACTIONS (2)
  - ASTHENIA [None]
  - SALMONELLOSIS [None]
